FAERS Safety Report 6819086-X (Version None)
Quarter: 2010Q3

REPORT INFORMATION
  Report Type: 
  Country: None (occurrence: None)
  Receive Date: 20100707
  Receipt Date: 20100701
  Transmission Date: 20110219
  Serious: Yes (Other)
  Sender: FDA-Public Use
  Company Number: US-ELI_LILLY_AND_COMPANY-US201005001037

PATIENT
  Sex: Female

DRUGS (4)
  1. HUMALOG MIX 75/25 [Suspect]
     Indication: DIABETES MELLITUS
     Dosage: UNK, UNK
  2. ACTOS [Concomitant]
  3. PRECOSE [Concomitant]
  4. LANTUS [Concomitant]
     Dates: start: 20100212

REACTIONS (6)
  - CATARACT [None]
  - DIABETIC RETINOPATHY [None]
  - DRUG HYPERSENSITIVITY [None]
  - MEMORY IMPAIRMENT [None]
  - OPEN ANGLE GLAUCOMA [None]
  - POSTERIOR CAPSULE OPACIFICATION [None]
